FAERS Safety Report 8984344 (Version 1)
Quarter: 2012Q4

REPORT INFORMATION
  Report Type: 
  Country: AU (occurrence: AU)
  Receive Date: 20121226
  Receipt Date: 20121226
  Transmission Date: 20130627
  Serious: Yes (Death)
  Sender: FDA-Public Use
  Company Number: AU-PFIZER INC-2012322127

PATIENT
  Sex: Male

DRUGS (1)
  1. XYNTHA [Suspect]

REACTIONS (1)
  - Death [Fatal]
